FAERS Safety Report 15506425 (Version 2)
Quarter: 2018Q4

REPORT INFORMATION
  Report Type: Spontaneous
  Country: US (occurrence: US)
  Receive Date: 20181016
  Receipt Date: 20181228
  Transmission Date: 20190205
  Serious: No
  Sender: FDA-Public Use
  Company Number: US-ASTRAZENECA-2018SF30417

PATIENT
  Age: 24894 Day
  Sex: Female
  Weight: 37.6 kg

DRUGS (11)
  1. NEXIUM [Suspect]
     Active Substance: ESOMEPRAZOLE MAGNESIUM
     Route: 048
  2. FIORINAL [Concomitant]
     Active Substance: ASPIRIN\BUTALBITAL\CAFFEINE
  3. AMANTADINE. [Interacting]
     Active Substance: AMANTADINE HYDROCHLORIDE
     Indication: DYSKINESIA
     Route: 048
     Dates: start: 20180901
  4. SINEMET [Concomitant]
     Active Substance: CARBIDOPA\LEVODOPA
  5. AZILECT [Concomitant]
     Active Substance: RASAGILINE MESYLATE
  6. MOTRIN [Concomitant]
     Active Substance: IBUPROFEN
  7. DULCOLAX NOS [Concomitant]
     Active Substance: BISACODYL OR DOCUSATE SODIUM
  8. TUMS [Concomitant]
     Active Substance: CALCIUM CARBONATE
  9. PEPCID [Concomitant]
     Active Substance: FAMOTIDINE
  10. SEROQUEL [Suspect]
     Active Substance: QUETIAPINE FUMARATE
     Route: 048
     Dates: end: 20180903
  11. AMANTADINE. [Interacting]
     Active Substance: AMANTADINE HYDROCHLORIDE
     Indication: DYSKINESIA
     Route: 048
     Dates: start: 20180825, end: 20180831

REACTIONS (16)
  - Arthritis [Unknown]
  - Deafness unilateral [Not Recovered/Not Resolved]
  - Hallucination [Not Recovered/Not Resolved]
  - Somnolence [Unknown]
  - Speech disorder [Unknown]
  - Muscular weakness [Unknown]
  - Middle insomnia [Unknown]
  - Viral infection [Recovering/Resolving]
  - Balance disorder [Unknown]
  - Fatigue [Unknown]
  - Drug interaction [Unknown]
  - Fall [Not Recovered/Not Resolved]
  - Tremor [Unknown]
  - Limb injury [Unknown]
  - Finger deformity [Unknown]
  - Fear of falling [Unknown]

NARRATIVE: CASE EVENT DATE: 20180905
